FAERS Safety Report 8388384-3 (Version None)
Quarter: 2012Q2

REPORT INFORMATION
  Report Type: 
  Country: None (occurrence: None)
  Receive Date: 20120525
  Receipt Date: 20120514
  Transmission Date: 20120825
  Serious: Yes (Hospitalization)
  Sender: FDA-Public Use
  Company Number: IT-ELI_LILLY_AND_COMPANY-IT201205005404

PATIENT
  Sex: Male

DRUGS (3)
  1. ZYPREXA [Suspect]
     Indication: DEPRESSION
     Dosage: 10 MG, QD
     Route: 048
     Dates: start: 20120101
  2. METFORMIN HCL [Concomitant]
     Dosage: 500 MG, QD
     Dates: start: 20120101
  3. AMARYL [Concomitant]
     Dosage: 4 MG, QD
     Route: 048
     Dates: start: 20120101

REACTIONS (2)
  - OFF LABEL USE [None]
  - VERTIGO [None]
